FAERS Safety Report 21636077 (Version 3)
Quarter: 2022Q4

REPORT INFORMATION
  Report Type: Other
  Country: IT (occurrence: IT)
  Receive Date: 20221123
  Receipt Date: 20221228
  Transmission Date: 20230113
  Serious: Yes (Other)
  Sender: FDA-Public Use
  Company Number: IT-CELLTRION INC.-2022IT019509

PATIENT

DRUGS (17)
  1. RITUXIMAB [Suspect]
     Active Substance: RITUXIMAB
     Indication: Diffuse large B-cell lymphoma
     Dosage: UNK,UNK,  UNKNOWN FREQUENCY
     Route: 042
     Dates: start: 20220324, end: 20220329
  2. RITUXIMAB [Suspect]
     Active Substance: RITUXIMAB
     Dosage: UNK, UNK, UNKNOWN FREQUENCY
     Route: 042
     Dates: start: 20220502, end: 20220531
  3. RITUXIMAB [Suspect]
     Active Substance: RITUXIMAB
     Dosage: UNK, UNK, UNKNOWN FREQUENCY
     Route: 042
     Dates: start: 20220617, end: 20220624
  4. VINCRISTINE [Suspect]
     Active Substance: VINCRISTINE
     Indication: Diffuse large B-cell lymphoma
     Dosage: UNK, UNKNOWN FREQUENCY
     Dates: start: 20220324, end: 20220329
  5. VINCRISTINE [Suspect]
     Active Substance: VINCRISTINE
     Dosage: UNK, UNKNOWN FREQUENCY
     Dates: start: 20220502, end: 20220531
  6. IFOSFAMIDE [Suspect]
     Active Substance: IFOSFAMIDE
     Indication: Diffuse large B-cell lymphoma
     Dosage: UNK, UNK UNKNOWN FREQUENCY
     Dates: start: 20220617, end: 20220624
  7. METHOTREXATE [Suspect]
     Active Substance: METHOTREXATE
     Indication: Diffuse large B-cell lymphoma
     Dosage: UNK, UNK, UNKNOWN FREQ.
  8. PREDNISONE [Suspect]
     Active Substance: PREDNISONE
     Indication: Diffuse large B-cell lymphoma
     Dosage: UNK, UNKNOWN FREQUENCY
     Dates: start: 20220324, end: 20220329
  9. POLATUZUMAB VEDOTIN [Suspect]
     Active Substance: POLATUZUMAB VEDOTIN
     Indication: Diffuse large B-cell lymphoma
     Dosage: UNK, UNK UNKNOWN FREQUENCY
  10. CYTARABINE [Suspect]
     Active Substance: CYTARABINE
     Indication: Diffuse large B-cell lymphoma
     Dosage: UNK, UNKNOWN FREQUENCY
     Dates: start: 20220617, end: 20220624
  11. CYCLOPHOSPHAMIDE [Suspect]
     Active Substance: CYCLOPHOSPHAMIDE
     Indication: Diffuse large B-cell lymphoma
     Dosage: UNK, UNK, UNKNOWN FREQUENCY
     Dates: start: 20220324, end: 20220329
  12. CYCLOPHOSPHAMIDE [Suspect]
     Active Substance: CYCLOPHOSPHAMIDE
     Dosage: UNK,UNK, UNKNOWN FREQUENCY
     Dates: start: 20220502, end: 20220531
  13. BENDAMUSTINE HYDROCHLORIDE [Suspect]
     Active Substance: BENDAMUSTINE HYDROCHLORIDE
     Indication: Diffuse large B-cell lymphoma
     Dosage: UNK, CYCLIC
     Route: 042
  14. ETOPOSIDE PHOSPHATE [Suspect]
     Active Substance: ETOPOSIDE PHOSPHATE
     Indication: Diffuse large B-cell lymphoma
     Dosage: UNK, UNKNOWN FREQUENCY
     Dates: start: 20220324, end: 20220329
  15. DOXORUBICIN [Suspect]
     Active Substance: DOXORUBICIN
     Indication: Diffuse large B-cell lymphoma
     Dosage: UNK, UNKNOWN FREQUENCY
     Dates: start: 20220324, end: 20220329
  16. DOXORUBICIN [Suspect]
     Active Substance: DOXORUBICIN
     Dosage: UNK, UNKNOWN FREQUENCY
     Dates: start: 20220502, end: 20220531
  17. BENDAMUSTINE HYDROCHLORIDE [Suspect]
     Active Substance: BENDAMUSTINE HYDROCHLORIDE
     Indication: Diffuse large B-cell lymphoma
     Dosage: UNK, CYCLIC
     Route: 042

REACTIONS (3)
  - Malignant neoplasm progression [Unknown]
  - Blood lactate dehydrogenase increased [Unknown]
  - Off label use [Unknown]
